FAERS Safety Report 18151638 (Version 3)
Quarter: 2020Q4

REPORT INFORMATION
  Report Type: Spontaneous
  Country: US (occurrence: US)
  Receive Date: 20200814
  Receipt Date: 20201216
  Transmission Date: 20210113
  Serious: Yes (Death, Hospitalization, Other)
  Sender: FDA-Public Use
  Company Number: US-PFIZER INC-2019335375

PATIENT
  Age: 73 Year
  Sex: Male
  Weight: 73.03 kg

DRUGS (4)
  1. SUTENT [Suspect]
     Active Substance: SUNITINIB MALATE
     Indication: PROSTATE CANCER
     Dosage: 75 MG, CYCLIC (2 CAPSULES OF 37.5 MG, DAILY FOR 2 WEEKS AND THEN 2 WEEKS OFF)
  2. SUTENT [Suspect]
     Active Substance: SUNITINIB MALATE
     Indication: PANCREATIC CARCINOMA
     Dosage: 37.5 MG, CYCLIC (ONCE A DAY FOR 2 WEEKS THEN STOP FOR 2 WEEKS)
     Route: 048
     Dates: start: 201907
  3. SUTENT [Suspect]
     Active Substance: SUNITINIB MALATE
     Indication: PANCREATIC NEUROENDOCRINE TUMOUR
     Dosage: 75 MG, CYCLIC (2 CAPSULES OF 37.5 MG, DAILY FOR 2 WEEKS AND THEN 2 WEEKS OFF)
     Dates: start: 201111
  4. SUTENT [Suspect]
     Active Substance: SUNITINIB MALATE
     Dosage: 37.5 MG, CYCLIC (DAILY FOR 14 DAYS AND 14 DAYS OFF)
     Route: 048
     Dates: end: 202010

REACTIONS (4)
  - Cardiac valve disease [Fatal]
  - Pulmonary oedema [Recovered/Resolved]
  - Cerebrovascular accident [Fatal]
  - Cardiac arrest [Fatal]

NARRATIVE: CASE EVENT DATE: 20200803
